FAERS Safety Report 10066422 (Version 3)
Quarter: 2015Q2

REPORT INFORMATION
  Report Type: Spontaneous
  Country: US (occurrence: US)
  Receive Date: 20140408
  Receipt Date: 20150527
  Transmission Date: 20150821
  Serious: Yes (Death, Life-Threatening, Other)
  Sender: FDA-Public Use
  Company Number: US-MERCK-1404USA004130

PATIENT
  Sex: Female
  Weight: 45.35 kg

DRUGS (1)
  1. JANUVIA [Suspect]
     Active Substance: SITAGLIPTIN PHOSPHATE
     Indication: TYPE 2 DIABETES MELLITUS
     Dosage: 50 MG, QD
     Route: 048
     Dates: start: 20090728, end: 20120416

REACTIONS (10)
  - Metastases to liver [Unknown]
  - Constipation [Unknown]
  - Pancreatic carcinoma metastatic [Fatal]
  - Hypercholesterolaemia [Unknown]
  - Coronary artery bypass [Unknown]
  - Carotid endarterectomy [Unknown]
  - Fatigue [Unknown]
  - Hypertension [Unknown]
  - Benign neoplasm of thyroid gland [Unknown]
  - Coronary arterial stent insertion [Unknown]

NARRATIVE: CASE EVENT DATE: 201201
